FAERS Safety Report 24337327 (Version 2)
Quarter: 2024Q4

REPORT INFORMATION
  Report Type: Spontaneous
  Country: GB (occurrence: GB)
  Receive Date: 20240919
  Receipt Date: 20241010
  Transmission Date: 20250115
  Serious: Yes (Other)
  Sender: IPCA
  Company Number: GB-IPCA LABORATORIES LIMITED-IPC-2024-GB-002198

PATIENT

DRUGS (1)
  1. FUROSEMIDE [Suspect]
     Active Substance: FUROSEMIDE
     Indication: Product used for unknown indication
     Dosage: UNK
     Route: 065
     Dates: start: 20240621, end: 20240913

REACTIONS (1)
  - Pollakiuria [Unknown]
